FAERS Safety Report 14026283 (Version 1)
Quarter: 2017Q3

REPORT INFORMATION
  Report Type: Report from Study
  Country: None (occurrence: NL)
  Receive Date: 20170929
  Receipt Date: 20170929
  Transmission Date: 20171128
  Serious: Yes (Other)
  Sender: FDA-Public Use
  Company Number: NL-ABBVIE-17K-114-2113041-00

PATIENT
  Sex: Male

DRUGS (1)
  1. DUODOPA [Suspect]
     Active Substance: CARBIDOPA\LEVODOPA
     Indication: PARKINSON^S DISEASE
     Dosage: MORNING DOSE: 7.0??CONTINUOUS DOSE: 2.4??EXTRA DOSE: 2.0
     Route: 050
     Dates: start: 20160315

REACTIONS (4)
  - Post procedural discomfort [Not Recovered/Not Resolved]
  - Skin disorder [Recovered/Resolved]
  - Postoperative wound complication [Not Recovered/Not Resolved]
  - Wound secretion [Not Recovered/Not Resolved]
